FAERS Safety Report 5467686-4 (Version None)
Quarter: 2007Q3

REPORT INFORMATION
  Report Type: 
  Country: None (occurrence: None)
  Receive Date: 20070921
  Receipt Date: 20070905
  Transmission Date: 20080115
  Serious: Yes (Other)
  Sender: FDA-Public Use
  Company Number: 2007RR-09849

PATIENT
  Age: 57 Year
  Sex: Female

DRUGS (3)
  1. CLARITHROMYCIN [Suspect]
     Indication: HELICOBACTER INFECTION
     Dosage: 250 MG, BID, ORAL
     Route: 048
  2. RANITIDINE [Suspect]
     Indication: HELICOBACTER INFECTION
     Dosage: 300 MG, BID, ORAL
     Route: 048
  3. AMOXICILLIN [Suspect]
     Indication: HELICOBACTER INFECTION
     Dosage: 100 MG, BID, ORAL
     Route: 048

REACTIONS (1)
  - EYE IRRITATION [None]
